FAERS Safety Report 9912150 (Version 1)
Quarter: 2014Q1

REPORT INFORMATION
  Report Type: Report from Study
  Country: US (occurrence: US)
  Receive Date: 20140220
  Receipt Date: 20140220
  Transmission Date: 20141002
  Serious: Yes (Hospitalization)
  Sender: FDA-Public Use
  Company Number: US-BRISTOL-MYERS SQUIBB COMPANY-20153797

PATIENT
  Age: 57 Year
  Sex: Male
  Weight: 86.17 kg

DRUGS (2)
  1. YERVOY [Suspect]
     Indication: MALIGNANT MELANOMA
     Dosage: SECOND DOSE:22JAN2014
     Dates: start: 20131220
  2. PREDNISONE [Concomitant]
     Dates: start: 20140123

REACTIONS (3)
  - Diarrhoea [Unknown]
  - Dehydration [Unknown]
  - Atrial fibrillation [Unknown]
